FAERS Safety Report 15498423 (Version 3)
Quarter: 2022Q3

REPORT INFORMATION
  Report Type: Spontaneous
  Country: FR (occurrence: FR)
  Receive Date: 20181015
  Receipt Date: 20220624
  Transmission Date: 20221027
  Serious: Yes (Death, Other)
  Sender: FDA-Public Use
  Company Number: None

PATIENT
  Age: 83 Year
  Sex: Female
  Weight: 41 kg

DRUGS (2)
  1. MEKINIST [Suspect]
     Active Substance: TRAMETINIB DIMETHYL SULFOXIDE
     Indication: Chronic myelomonocytic leukaemia
     Dosage: 2 MG, QD
     Route: 048
     Dates: start: 20180721, end: 20180817
  2. HYDROXYUREA [Suspect]
     Active Substance: HYDROXYUREA
     Indication: Chronic myelomonocytic leukaemia
     Dosage: 1000 MG, QD
     Route: 065
     Dates: start: 20180721, end: 20180727

REACTIONS (6)
  - Toxic encephalopathy [Fatal]
  - Toxic encephalopathy [Recovered/Resolved]
  - Central nervous system leukaemia [Unknown]
  - Chronic myelomonocytic leukaemia [Unknown]
  - Malignant neoplasm progression [Unknown]
  - Product use in unapproved indication [Unknown]

NARRATIVE: CASE EVENT DATE: 20180806
